FAERS Safety Report 21622430 (Version 1)
Quarter: 2022Q4

REPORT INFORMATION
  Report Type: Spontaneous
  Country: US (occurrence: None)
  Receive Date: 20221119
  Receipt Date: 20221119
  Transmission Date: 20230113
  Serious: Yes (Hospitalization, Other)
  Sender: FDA-Public Use
  Company Number: None

PATIENT
  Age: 49 Year
  Sex: Female
  Weight: 90 kg

DRUGS (2)
  1. FERAHEME [Suspect]
     Active Substance: FERUMOXYTOL NON-STOICHIOMETRIC MAGNETITE
     Indication: Anaemia
     Dosage: OTHER FREQUENCY : 4 DAYS APART;?
     Route: 042
     Dates: start: 20221113, end: 20221117
  2. PRILOSEC [Concomitant]
     Active Substance: OMEPRAZOLE MAGNESIUM

REACTIONS (12)
  - Anaphylactic reaction [None]
  - Infusion related reaction [None]
  - Chills [None]
  - Blood pressure increased [None]
  - Heart rate increased [None]
  - Paraesthesia oral [None]
  - Throat tightness [None]
  - Speech disorder [None]
  - Dyspnoea [None]
  - Headache [None]
  - Chest discomfort [None]
  - Pain [None]

NARRATIVE: CASE EVENT DATE: 20221117
